FAERS Safety Report 9586476 (Version 2)
Quarter: 2013Q4

REPORT INFORMATION
  Report Type: Report from Study
  Country: US (occurrence: US)
  Receive Date: 20131003
  Receipt Date: 20131204
  Transmission Date: 20140711
  Serious: Yes (Hospitalization, Other)
  Sender: FDA-Public Use
  Company Number: PHEH2013US020444

PATIENT
  Age: 10 Year
  Sex: Male

DRUGS (1)
  1. TOBI [Suspect]
     Indication: PNEUMONIA ADENOVIRAL
     Dosage: 300 MG/ 5 ML, BID

REACTIONS (2)
  - Lung infection pseudomonal [Unknown]
  - Pneumonia [Recovered/Resolved]
